FAERS Safety Report 26153697 (Version 1)
Quarter: 2025Q4

REPORT INFORMATION
  Report Type: Spontaneous
  Country: US (occurrence: US)
  Receive Date: 20251214
  Receipt Date: 20251214
  Transmission Date: 20260117
  Serious: No
  Sender: Atnahs Healthcare
  Company Number: US-ATNAHS-ATNAHS20250201073

PATIENT
  Sex: Male

DRUGS (1)
  1. VALIUM [Suspect]
     Active Substance: DIAZEPAM
     Indication: Product used for unknown indication
     Dosage: UNKNOWN

REACTIONS (4)
  - Nightmare [Unknown]
  - Drug ineffective [Unknown]
  - Headache [Unknown]
  - Illness [Unknown]
